FAERS Safety Report 9140270 (Version 2)
Quarter: 2013Q1

REPORT INFORMATION
  Report Type: Spontaneous
  Country: IT (occurrence: IT)
  Receive Date: 20130305
  Receipt Date: 20130308
  Transmission Date: 20140127
  Serious: No
  Sender: FDA-Public Use
  Company Number: IT-ASTRAZENECA-2013SE13123

PATIENT
  Age: 16774 Day
  Sex: Female

DRUGS (1)
  1. FASLODEX [Suspect]
     Route: 030

REACTIONS (3)
  - Dyspnoea [Unknown]
  - Flushing [Unknown]
  - Pruritus generalised [Recovered/Resolved]
